FAERS Safety Report 7170039-4 (Version None)
Quarter: 2010Q4

REPORT INFORMATION
  Report Type: 
  Country: None (occurrence: None)
  Receive Date: 20101206
  Receipt Date: 20101118
  Transmission Date: 20110411
  Serious: Yes (Other)
  Sender: FDA-Public Use
  Company Number: 2010005074

PATIENT
  Age: 82 Year
  Sex: Male

DRUGS (12)
  1. TARCEVA [Suspect]
     Indication: LUNG NEOPLASM MALIGNANT
     Dosage: (150 MG, D), ORAL
     Route: 048
     Dates: start: 20080814, end: 20080824
  2. METOPROLOL TARTRATE [Concomitant]
  3. ATACAND [Concomitant]
  4. ENALAPRIL MALEATE [Concomitant]
  5. METHOTREXATE [Concomitant]
  6. FENURIL (FENURIL) [Concomitant]
  7. FOLACIN (FOLACIN) [Concomitant]
  8. SALURES (BENDROFLUMETHAIZIDE) [Concomitant]
  9. BEHEPAN (CYANOCOBALAMIN) [Concomitant]
  10. LOCOID [Concomitant]
  11. KETOPROFEN [Concomitant]
  12. ACETYLSALICYLIC ACID SRT [Concomitant]

REACTIONS (5)
  - CONJUNCTIVITIS [None]
  - NAUSEA [None]
  - RASH [None]
  - SCLERITIS [None]
  - VOMITING [None]
